FAERS Safety Report 8337827-X (Version None)
Quarter: 2012Q1

REPORT INFORMATION
  Report Type: 
  Country: None (occurrence: None)
  Receive Date: 20120329
  Receipt Date: 20100901
  Transmission Date: 20120608
  Serious: Yes (Other)
  Sender: FDA-Public Use
  Company Number: PHHY2010US58147

PATIENT
  Sex: Female

DRUGS (2)
  1. RISPERIDONE [Suspect]
     Dosage: UNK
  2. EXELON [Suspect]
     Dosage: 9.5 MG, UNK, TRANSDERMAL
     Route: 062

REACTIONS (2)
  - DEPRESSION [None]
  - FALL [None]
